FAERS Safety Report 20528154 (Version 1)
Quarter: 2022Q1

REPORT INFORMATION
  Report Type: Spontaneous
  Country: US (occurrence: None)
  Receive Date: 20220228
  Receipt Date: 20220228
  Transmission Date: 20220423
  Serious: Yes (Life-Threatening, Disabling, Other)
  Sender: FDA-Public Use
  Company Number: None

PATIENT
  Age: 31 Year
  Sex: Female
  Weight: 78.75 kg

DRUGS (1)
  1. GABAPENTIN [Suspect]
     Active Substance: GABAPENTIN
     Indication: Neuropathy peripheral
     Dosage: OTHER QUANTITY : 1 TABLET(S);?FREQUENCY : 3 TIMES A DAY;?
     Route: 048
     Dates: start: 20130101

REACTIONS (8)
  - Eye discharge [None]
  - Eye swelling [None]
  - Tremor [None]
  - Decreased appetite [None]
  - Inability to afford medication [None]
  - Incorrect dose administered [None]
  - Heart rate increased [None]
  - Therapy interrupted [None]

NARRATIVE: CASE EVENT DATE: 20210901
